FAERS Safety Report 4810402-7 (Version None)
Quarter: 2005Q4

REPORT INFORMATION
  Report Type: 
  Country: None (occurrence: None)
  Receive Date: 20051024
  Receipt Date: 20051014
  Transmission Date: 20060501
  Serious: Yes (Hospitalization, Other)
  Sender: FDA-Public Use
  Company Number: KII-2005-0019151

PATIENT
  Age: 14 Year
  Sex: Male

DRUGS (4)
  1. OXYCONTIN [Suspect]
     Indication: INTENTIONAL DRUG MISUSE
     Dosage: SEE TEXT, ORAL
     Route: 048
  2. MORPHINE [Suspect]
     Indication: INTENTIONAL DRUG MISUSE
     Dosage: SEE TEXT, ORAL
     Route: 048
  3. BENZODIAZEPINE DERIVATIVES () [Suspect]
     Indication: INTENTIONAL DRUG MISUSE
     Dosage: SEE TEXT, ORAL
     Route: 048
  4. TETRAHYDROCANNABINOL (TETRAHYDROCANNABINOL) [Suspect]
     Indication: INTENTIONAL DRUG MISUSE

REACTIONS (7)
  - DEPRESSED LEVEL OF CONSCIOUSNESS [None]
  - DISORIENTATION [None]
  - DRUG SCREEN POSITIVE [None]
  - MENTAL STATUS CHANGES [None]
  - POLYSUBSTANCE ABUSE [None]
  - SELF-MEDICATION [None]
  - SLUGGISHNESS [None]
